FAERS Safety Report 9289192 (Version 1)
Quarter: 2013Q2

REPORT INFORMATION
  Report Type: Spontaneous
  Country: US (occurrence: US)
  Receive Date: 20130514
  Receipt Date: 20130514
  Transmission Date: 20140414
  Serious: No
  Sender: FDA-Public Use
  Company Number: US-OPTIMER PHARMACEUTICALS, INC.-20120033

PATIENT
  Age: 75 Year
  Sex: Female
  Weight: 45.35 kg

DRUGS (10)
  1. DIFICID [Suspect]
     Indication: CLOSTRIDIUM DIFFICILE COLITIS
     Dosage: 200 MG, BID
     Route: 048
     Dates: start: 20120224, end: 20120304
  2. PROTONIX [Concomitant]
     Indication: REFLUX GASTRITIS
     Dosage: 40 MG, QD
     Route: 048
     Dates: start: 2007
  3. PLAQUENIL [Concomitant]
     Indication: SCLERODERMA
     Dosage: 100 MG, BID
     Route: 048
     Dates: start: 2009
  4. CLARITIN [Concomitant]
     Indication: SEASONAL ALLERGY
     Dosage: 10 MG, QD
     Dates: start: 2011
  5. ASPIRIN [Concomitant]
     Indication: PROPHYLAXIS
     Dosage: 81 MG, QD
     Route: 048
     Dates: start: 2011
  6. ARICEPT [Concomitant]
     Indication: AMNESIA
     Dosage: 10 MG, QD
     Route: 048
     Dates: start: 2009
  7. ZOLOFT [Concomitant]
     Indication: ANXIETY
     Dosage: 50 MG, QD
     Route: 048
     Dates: start: 2011
  8. VITAMIN D NOS [Concomitant]
     Indication: VITAMIN SUPPLEMENTATION
     Dosage: 1000 UNITS, QD
     Route: 048
     Dates: start: 2007
  9. VITAMIN C [Concomitant]
     Indication: VITAMIN SUPPLEMENTATION
     Dosage: 500 MG, QD
     Route: 048
     Dates: start: 2007
  10. IRON [Concomitant]
     Indication: ANAEMIA
     Dosage: 27 MG, QD
     Route: 048
     Dates: start: 2007

REACTIONS (4)
  - Clostridium difficile colitis [Unknown]
  - Disease recurrence [Unknown]
  - Diarrhoea [Recovering/Resolving]
  - Pyrexia [Recovered/Resolved]
